FAERS Safety Report 15097573 (Version 1)
Quarter: 2018Q3

REPORT INFORMATION
  Report Type: Spontaneous
  Country: AT (occurrence: AT)
  Receive Date: 20180702
  Receipt Date: 20180702
  Transmission Date: 20181010
  Serious: Yes (Death, Hospitalization, Other)
  Sender: FDA-Public Use
  Company Number: AT-MYLANLABS-2018M1046221

PATIENT
  Age: 59 Year
  Sex: Female

DRUGS (8)
  1. LORAZEPAM. [Concomitant]
     Active Substance: LORAZEPAM
     Indication: DRUG WITHDRAWAL SYNDROME
     Route: 042
  2. MORPHINE [Suspect]
     Active Substance: MORPHINE
     Route: 042
  3. CLONIDINE. [Concomitant]
     Active Substance: CLONIDINE
     Indication: DRUG WITHDRAWAL SYNDROME
     Dosage: ADMINISTERED THROUGH THE IV SYRINGE DRIVER
     Route: 042
  4. METHADONE [Suspect]
     Active Substance: METHADONE HYDROCHLORIDE
     Indication: ADENOCARCINOMA
     Dosage: 30 DROPS TWICE DAILY, EACH DROP WITH 0.4MG METHADONE (PREPARED BY ADDING 1G METHADONE TO 100ML PU...
     Route: 065
     Dates: end: 20170717
  5. MORPHINE [Suspect]
     Active Substance: MORPHINE
     Indication: CANCER PAIN
     Route: 042
  6. MORPHINE [Suspect]
     Active Substance: MORPHINE
     Dosage: FOR BREAKTHROUGH PAIN EVERY HOUR AS NEEDED
     Route: 042
  7. METAMIZOL                          /06276701/ [Concomitant]
     Active Substance: METAMIZOLE
     Indication: DRUG WITHDRAWAL SYNDROME
     Dosage: ADMINISTERED THROUGH THE IV SYRINGE DRIVER
     Route: 042
  8. PARACETAMOL [Concomitant]
     Active Substance: ACETAMINOPHEN
     Indication: DRUG WITHDRAWAL SYNDROME
     Dosage: ADMINISTERED THROUGH THE IV SYRINGE DRIVER
     Route: 042

REACTIONS (8)
  - Muscle spasms [Recovered/Resolved]
  - Dyspnoea [Unknown]
  - Chills [Recovered/Resolved]
  - Drug withdrawal syndrome [Recovering/Resolving]
  - Cancer pain [Unknown]
  - Myoclonus [Recovered/Resolved]
  - Off label use [Recovering/Resolving]
  - Agitation [Unknown]

NARRATIVE: CASE EVENT DATE: 20170718
